FAERS Safety Report 7202224-7 (Version None)
Quarter: 2010Q4

REPORT INFORMATION
  Report Type: 
  Country: None (occurrence: None)
  Receive Date: 20101229
  Receipt Date: 20101216
  Transmission Date: 20110411
  Serious: Yes (Death)
  Sender: FDA-Public Use
  Company Number: PHHY2010JP88084

PATIENT
  Sex: Female
  Weight: 41 kg

DRUGS (6)
  1. DIOVAN [Suspect]
     Dosage: 80 MG, QD
     Route: 048
     Dates: start: 20070910
  2. NORVASC [Concomitant]
     Indication: HYPERTENSION
     Dosage: 5 MG, UNK
     Route: 048
     Dates: end: 20070720
  3. LASIX [Concomitant]
     Dosage: 40 MG, UNK
     Route: 048
     Dates: start: 20071005
  4. ISALON [Concomitant]
     Dosage: 200 MG, UNK
     Route: 048
  5. ALLOPURINOL [Concomitant]
     Dosage: 200 MG, UNK
     Route: 048
     Dates: start: 20071015
  6. ACTONEL [Concomitant]
     Dosage: 2.5 MG, UNK
     Route: 048
     Dates: start: 20070910, end: 20090513

REACTIONS (1)
  - DEATH [None]
